FAERS Safety Report 16019460 (Version 1)
Quarter: 2019Q1

REPORT INFORMATION
  Report Type: Spontaneous
  Country: ES (occurrence: ES)
  Receive Date: 20190228
  Receipt Date: 20190228
  Transmission Date: 20190418
  Serious: Yes (Other)
  Sender: FDA-Public Use
  Company Number: ES-TEVA-2019-ES-1017824

PATIENT
  Sex: Male

DRUGS (2)
  1. ACTIQ [Suspect]
     Active Substance: FENTANYL CITRATE
     Indication: PAIN
     Route: 002
  2. ACTIQ [Suspect]
     Active Substance: FENTANYL CITRATE
     Indication: PAIN
     Route: 002

REACTIONS (5)
  - Spinal column injury [Unknown]
  - Pain [Unknown]
  - Product use in unapproved indication [Unknown]
  - Hypokinesia [Unknown]
  - Tooth disorder [Unknown]
